FAERS Safety Report 5974746-8 (Version None)
Quarter: 2008Q4

REPORT INFORMATION
  Report Type: 
  Country: None (occurrence: None)
  Receive Date: 20081201
  Receipt Date: 20081125
  Transmission Date: 20090506
  Serious: Yes (Hospitalization, Other)
  Sender: FDA-Public Use
  Company Number: BR-PFIZER INC-2008100368

PATIENT
  Sex: Female

DRUGS (2)
  1. FRONTAL [Suspect]
     Indication: PANIC DISORDER
     Route: 048
     Dates: start: 19960101
  2. EFFEXOR XR [Concomitant]
     Dates: start: 19980101

REACTIONS (6)
  - ANXIETY [None]
  - BEREAVEMENT REACTION [None]
  - EATING DISORDER [None]
  - FALL [None]
  - MALAISE [None]
  - MUSCULOSKELETAL STIFFNESS [None]
